FAERS Safety Report 6140170-0 (Version None)
Quarter: 2009Q2

REPORT INFORMATION
  Report Type: 
  Country: None (occurrence: None)
  Receive Date: 20090401
  Receipt Date: 20090323
  Transmission Date: 20091009
  Serious: Yes (Hospitalization)
  Sender: FDA-Public Use
  Company Number: GB-WYE-H08669609

PATIENT
  Age: 62 Year
  Sex: Male

DRUGS (4)
  1. TAZOCIN [Suspect]
     Indication: BACTERAEMIA
     Dosage: UNKNOWN
     Route: 042
  2. MEROPENEM [Suspect]
     Indication: BACTERAEMIA
     Dosage: UNKNOWN
  3. VANCOMYCIN HCL [Suspect]
     Indication: BACTERAEMIA
     Dosage: UNKNOWN
  4. GENTAMICIN [Suspect]
     Indication: BACTERAEMIA
     Dosage: UNKNOWN

REACTIONS (2)
  - DRUG RASH WITH EOSINOPHILIA AND SYSTEMIC SYMPTOMS [None]
  - GRAFT VERSUS HOST DISEASE [None]
